FAERS Safety Report 19221579 (Version 11)
Quarter: 2025Q4

REPORT INFORMATION
  Report Type: Report from Study
  Country: CA (occurrence: CA)
  Receive Date: 20210505
  Receipt Date: 20251217
  Transmission Date: 20260117
  Serious: Yes (Hospitalization, Other)
  Sender: PFIZER
  Company Number: CA-PFIZER INC-2020510613

PATIENT
  Age: 61 Year
  Sex: Female

DRUGS (20)
  1. XELJANZ XR [Suspect]
     Active Substance: TOFACITINIB CITRATE
     Indication: Rheumatoid arthritis
     Dosage: 11 MG, 1X/DAY
     Route: 048
     Dates: start: 20210105, end: 202102
  2. XELJANZ XR [Suspect]
     Active Substance: TOFACITINIB CITRATE
     Dosage: 11 MG, 1X/DAY
     Route: 048
     Dates: start: 2021, end: 2021
  3. XELJANZ XR [Suspect]
     Active Substance: TOFACITINIB CITRATE
     Dosage: 11 MG, 1X/DAY
     Route: 048
     Dates: start: 20210408, end: 202104
  4. XELJANZ XR [Suspect]
     Active Substance: TOFACITINIB CITRATE
     Dosage: 11 MG, 1X/DAY
     Route: 048
     Dates: start: 20210423, end: 20210924
  5. XELJANZ XR [Suspect]
     Active Substance: TOFACITINIB CITRATE
     Dosage: 11 MG, 1X/DAY
     Route: 048
     Dates: start: 20211026, end: 20231130
  6. AMITRIPTYLINE [Concomitant]
     Active Substance: AMITRIPTYLINE
     Dosage: 100 MG
  7. AMITRIPTYLINE [Concomitant]
     Active Substance: AMITRIPTYLINE
     Dosage: 10 MG
     Route: 065
  8. CODEINE [Concomitant]
     Active Substance: CODEINE
     Indication: Pain
     Dosage: 1 DF
  9. CURCUMIN [Concomitant]
     Active Substance: CURCUMIN
     Dosage: 1 DF, DOSAGE INFORMATION FOR CURCUMIN UNKNOWN
     Route: 065
  10. FLAXSEED [Concomitant]
     Active Substance: FLAX SEED
     Dosage: 1 DF, DOSAGE INFORMATION FOR FLAX SEED OIL UNKNOWN
     Route: 065
  11. IRON [Concomitant]
     Active Substance: IRON
  12. PANTOPRAZOLE [Concomitant]
     Active Substance: PANTOPRAZOLE
     Dosage: 40 MG
     Route: 065
  13. PREDNISONE [Concomitant]
     Active Substance: PREDNISONE
     Dosage: UNK
  14. TYLENOL [Concomitant]
     Active Substance: ACETAMINOPHEN
     Indication: Pain
     Dosage: 1 DF, DOSAGE INFORMATION FOR TYLENOL UNKNOWN
     Route: 065
  15. VAGOTHYL [Concomitant]
     Dosage: 1 DF, 2X/DAY
     Route: 065
  16. RETINOL [Concomitant]
     Active Substance: RETINOL
     Dosage: 1 DF, DOSAGE INFORMATION FOR VITAMIN A UNKNOWN
     Route: 065
  17. VITAMIN C [Concomitant]
     Active Substance: ASCORBIC ACID
     Dosage: 1 DF, DOSAGE INFORMATION FOR VITAMIN C UNKNOWN
     Route: 065
  18. VITAMIN E [Concomitant]
     Active Substance: .ALPHA.-TOCOPHEROL
     Dosage: 1 DF, DOSAGE INFORMATION FOR VITAMIN E UNKNOWN
     Route: 065
  19. ERGOCALCIFEROL [Concomitant]
     Active Substance: ERGOCALCIFEROL
     Dosage: 50000 IU
     Route: 065
  20. ZINC [Concomitant]
     Active Substance: ZINC
     Dosage: 1 DF, DOSAGE INFORMATION FOR ZINC UNKNOWN
     Route: 065

REACTIONS (24)
  - Loss of consciousness [Recovered/Resolved]
  - Fall [Recovered/Resolved]
  - Head injury [Recovered/Resolved]
  - Dizziness [Recovered/Resolved]
  - Subdural haemorrhage [Recovered/Resolved]
  - Orthostatic hypotension [Unknown]
  - Bronchitis [Unknown]
  - Immunodeficiency [Unknown]
  - Drug ineffective [Unknown]
  - Cystitis [Not Recovered/Not Resolved]
  - Urinary tract infection [Recovered/Resolved]
  - Musculoskeletal chest pain [Not Recovered/Not Resolved]
  - Coccydynia [Unknown]
  - Pain [Not Recovered/Not Resolved]
  - Hepatic enzyme increased [Unknown]
  - Dysuria [Unknown]
  - Cough [Recovering/Resolving]
  - Muscular weakness [Unknown]
  - Fall [Recovering/Resolving]
  - Scab [Recovering/Resolving]
  - Arthralgia [Not Recovered/Not Resolved]
  - Iron deficiency [Not Recovered/Not Resolved]
  - Polyp [Unknown]
  - Alopecia [Unknown]

NARRATIVE: CASE EVENT DATE: 20210101
